FAERS Safety Report 5822324-3 (Version None)
Quarter: 2008Q3

REPORT INFORMATION
  Report Type: 
  Country: None (occurrence: None)
  Receive Date: 20080722
  Receipt Date: 20080717
  Transmission Date: 20090109
  Serious: Yes (Hospitalization)
  Sender: FDA-Public Use
  Company Number: 2008SP006305

PATIENT
  Age: 58 Year
  Sex: Male
  Weight: 67.2 kg

DRUGS (6)
  1. PEGINTERFERON ALFA-2B (S-P) (PEGINTERFERON   ALFA-2B) [Suspect]
     Indication: HEPATIC CIRRHOSIS
     Dosage: 1.00 MCG/KG;QW; SC;  0.5 MCG/KG/QW;SC
     Route: 058
     Dates: start: 20080319, end: 20080319
  2. PEGINTERFERON ALFA-2B (S-P) (PEGINTERFERON   ALFA-2B) [Suspect]
     Indication: HEPATIC CIRRHOSIS
     Dosage: 1.00 MCG/KG;QW; SC;  0.5 MCG/KG/QW;SC
     Route: 058
     Dates: start: 20080328, end: 20080423
  3. PEGINTERFERON ALFA-2B (S-P) (PEGINTERFERON   ALFA-2B) [Suspect]
     Indication: HEPATIC CIRRHOSIS
     Dosage: 1.00 MCG/KG;QW; SC;  0.5 MCG/KG/QW;SC
     Route: 058
     Dates: start: 20080430, end: 20080507
  4. PEGINTERFERON ALFA-2B (S-P) (PEGINTERFERON   ALFA-2B) [Suspect]
     Indication: HEPATIC CIRRHOSIS
     Dosage: 1.00 MCG/KG;QW; SC;  0.5 MCG/KG/QW;SC
     Route: 058
     Dates: start: 20080514
  5. RIBAVIRIN [Suspect]
     Indication: HEPATIC CIRRHOSIS
     Dosage: 600 MG; QD; PO;  400 MG;QD;PO
     Route: 048
     Dates: start: 20080319, end: 20080422
  6. RIBAVIRIN [Suspect]
     Indication: HEPATIC CIRRHOSIS
     Dosage: 600 MG; QD; PO;  400 MG;QD;PO
     Route: 048
     Dates: start: 20080423

REACTIONS (4)
  - DIPLOPIA [None]
  - HAEMOGLOBIN DECREASED [None]
  - NEUTROPHIL COUNT DECREASED [None]
  - PLATELET COUNT DECREASED [None]
